FAERS Safety Report 6162897-7 (Version None)
Quarter: 2009Q2

REPORT INFORMATION
  Report Type: 
  Country: None (occurrence: None)
  Receive Date: 20090421
  Receipt Date: 20090121
  Transmission Date: 20091009
  Serious: No
  Sender: FDA-Public Use
  Company Number: US-ASTRAZENECA-2009UW02032

PATIENT
  Sex: Male

DRUGS (1)
  1. TOPROL-XL [Suspect]
     Route: 048
     Dates: end: 20090120

REACTIONS (3)
  - GASTROINTESTINAL DISORDER [None]
  - HEART RATE DECREASED [None]
  - HYPOTENSION [None]
